FAERS Safety Report 7416058-1 (Version None)
Quarter: 2011Q2

REPORT INFORMATION
  Report Type: 
  Country: None (occurrence: None)
  Receive Date: 20110414
  Receipt Date: 20110412
  Transmission Date: 20111010
  Serious: Yes (Hospitalization)
  Sender: FDA-Public Use
  Company Number: CA-US-EMD SERONO, INC.-7036353

PATIENT
  Sex: Female

DRUGS (1)
  1. REBIF [Suspect]
     Indication: MULTIPLE SCLEROSIS
     Route: 058
     Dates: start: 20100112, end: 20100422

REACTIONS (4)
  - MULTIPLE SCLEROSIS [None]
  - INJURY [None]
  - MULTIPLE SCLEROSIS RELAPSE [None]
  - FALL [None]
